FAERS Safety Report 5275227-X (Version None)
Quarter: 2007Q1

REPORT INFORMATION
  Report Type: 
  Country: None (occurrence: None)
  Receive Date: 20061213
  Receipt Date: 20060201
  Transmission Date: 20070707
  Serious: Yes (Disabling)
  Sender: FDA-Public Use
  Company Number: 2006UW01816

PATIENT
  Sex: Female

DRUGS (1)
  1. SEROQUEL [Suspect]
     Dates: start: 19900501, end: 20011201

REACTIONS (2)
  - INSULIN-REQUIRING TYPE II DIABETES MELLITUS [None]
  - WEIGHT INCREASED [None]
